FAERS Safety Report 7830072-3 (Version None)
Quarter: 2011Q4

REPORT INFORMATION
  Report Type: 
  Country: None (occurrence: None)
  Receive Date: 20111021
  Receipt Date: 20111014
  Transmission Date: 20120403
  Serious: No
  Sender: FDA-Public Use
  Company Number: US-B.I. PHARMACEUTICALS,INC./RIDGEFIELD-2011-BP-24333BP

PATIENT
  Age: 81 Year
  Sex: Female

DRUGS (4)
  1. ZANTAC 150 [Suspect]
     Dosage: 300 MG
     Route: 048
     Dates: start: 20090101
  2. CARBIDOPA AND LEVODOPA [Concomitant]
     Indication: PARKINSON'S DISEASE
  3. FLUDROCORTISONE ACETATE [Concomitant]
     Indication: HYPOTENSION
  4. AMANTADINE HCL [Concomitant]
     Indication: PARKINSON'S DISEASE

REACTIONS (1)
  - FLATULENCE [None]
